FAERS Safety Report 5309299-0 (Version None)
Quarter: 2007Q2

REPORT INFORMATION
  Report Type: 
  Country: None (occurrence: None)
  Receive Date: 20070424
  Receipt Date: 20070424
  Transmission Date: 20071010
  Serious: No
  Sender: FDA-Public Use
  Company Number: None

PATIENT

DRUGS (3)
  1. VIT K, 10MG.ML AMP [Suspect]
  2. VIT K, 1 MG/ML AMP [Suspect]
  3. . [Concomitant]

REACTIONS (1)
  - MEDICATION ERROR [None]
